FAERS Safety Report 16972252 (Version 1)
Quarter: 2019Q4

REPORT INFORMATION
  Report Type: Spontaneous
  Country: US (occurrence: US)
  Receive Date: 20191029
  Receipt Date: 20191029
  Transmission Date: 20200122
  Serious: No
  Sender: FDA-Public Use
  Company Number: US-BAUSCH-BL-2019-054706

PATIENT
  Sex: Female

DRUGS (1)
  1. LATANOPROST. [Suspect]
     Active Substance: LATANOPROST
     Indication: PRODUCT USED FOR UNKNOWN INDICATION
     Dosage: INTRAOCULAR
     Route: 047

REACTIONS (5)
  - Growth of eyelashes [Unknown]
  - Eyelid margin crusting [Unknown]
  - Therapeutic response unexpected [Unknown]
  - Eye irritation [Unknown]
  - Eye pruritus [Unknown]
